FAERS Safety Report 14260588 (Version 2)
Quarter: 2017Q4

REPORT INFORMATION
  Report Type: Spontaneous
  Country: FI (occurrence: FI)
  Receive Date: 20171207
  Receipt Date: 20171228
  Transmission Date: 20180321
  Serious: Yes (Life-Threatening, Other)
  Sender: FDA-Public Use
  Company Number: FI-BAUSCH-BL-2017-032717

PATIENT
  Age: 9 Month
  Sex: Male

DRUGS (7)
  1. OXYGEN 100 PERCENT [Concomitant]
     Indication: RESPIRATORY DISTRESS
     Dosage: OXYGEN CONCENTRATION HAD TO BE RAISED TO 70 PERCENT
  2. OXYGEN 100 PERCENT [Concomitant]
     Dosage: LOW-FLOW (2-5 L/MIN) ADMINISTRATION OF 100 PERCENT OXYGEN
  3. SALBUTAMOL [Suspect]
     Active Substance: ALBUTEROL
     Route: 055
  4. AMOXICILLIN. [Concomitant]
     Active Substance: AMOXICILLIN
     Indication: OTITIS MEDIA ACUTE
     Route: 048
  5. SALBUTAMOL [Suspect]
     Active Substance: ALBUTEROL
     Indication: WHEEZING
     Dosage: 1.5 MG/DOSE
     Route: 055
  6. EPINEPHRINE. [Suspect]
     Active Substance: EPINEPHRINE
     Indication: RESPIRATORY DISTRESS
     Route: 055
  7. SALBUTAMOL [Suspect]
     Active Substance: ALBUTEROL
     Dosage: SIX PUFFS/EVERY HOUR (0.1 MG/PUFF)
     Route: 055

REACTIONS (1)
  - Drug ineffective [Unknown]
